FAERS Safety Report 6178014-3 (Version None)
Quarter: 2009Q2

REPORT INFORMATION
  Report Type: 
  Country: None (occurrence: None)
  Receive Date: 20090504
  Receipt Date: 20090423
  Transmission Date: 20091009
  Serious: Yes (Hospitalization)
  Sender: FDA-Public Use
  Company Number: MX-AMGEN-US344351

PATIENT
  Sex: Female
  Weight: 70.1 kg

DRUGS (3)
  1. NEULASTA [Suspect]
     Indication: CHEMOTHERAPY
     Route: 058
  2. CYCLOPHOSPHAMIDE [Suspect]
     Route: 065
  3. ADRIAMYCIN RDF [Suspect]
     Route: 065

REACTIONS (2)
  - DEHYDRATION [None]
  - DEPRESSION [None]
